FAERS Safety Report 9475329 (Version 2)
Quarter: 2013Q3

REPORT INFORMATION
  Report Type: Spontaneous
  Country: US (occurrence: None)
  Receive Date: 20130821
  Receipt Date: 20130924
  Transmission Date: 20140515
  Serious: Yes (Hospitalization)
  Sender: FDA-Public Use
  Company Number: 20130437

PATIENT
  Age: 45 Year
  Sex: Female

DRUGS (1)
  1. VENOFER [Suspect]
     Indication: IRON DEFICIENCY ANAEMIA
     Dosage: 1 X 100 MG VIAL OVER 4 HRS INTRAVENOUS
     Route: 042
     Dates: start: 20130720, end: 20130720

REACTIONS (8)
  - Hypersensitivity [None]
  - Hypertension [None]
  - Myalgia [None]
  - Dyspnoea [None]
  - Malaise [None]
  - Fatigue [None]
  - Arthralgia [None]
  - Skin discolouration [None]
